FAERS Safety Report 6906852-5 (Version None)
Quarter: 2010Q3

REPORT INFORMATION
  Report Type: 
  Country: None (occurrence: None)
  Receive Date: 20100804
  Receipt Date: 20100727
  Transmission Date: 20110219
  Serious: Yes (Death)
  Sender: FDA-Public Use
  Company Number: US-AMGEN-QUU425009

PATIENT
  Sex: Male
  Weight: 87.6 kg

DRUGS (24)
  1. NPLATE [Suspect]
     Indication: IDIOPATHIC THROMBOCYTOPENIC PURPURA
     Route: 058
     Dates: start: 20090618, end: 20090918
  2. RITUXAN [Concomitant]
     Route: 042
  3. CYCLOPHOSPHAMIDE [Concomitant]
     Route: 042
     Dates: start: 20071226
  4. DOXORUBICIN HYDROCHLORIDE [Concomitant]
     Route: 042
  5. VINCRISTINE [Concomitant]
     Route: 042
  6. PREDNISOLONE [Concomitant]
  7. PLAVIX [Concomitant]
     Route: 048
  8. PREVACID [Concomitant]
     Route: 048
  9. SINGULAIR [Concomitant]
     Route: 048
  10. PRENATAL VITAMINS [Concomitant]
     Route: 048
  11. ASPIRIN [Concomitant]
     Route: 048
  12. DEXAMETHASONE [Concomitant]
     Route: 042
  13. PALONOSETRON HYDROCHLORIDE [Concomitant]
     Route: 042
  14. DIPHENHYDRAMINE [Concomitant]
     Route: 042
  15. ACETAMINOPHEN [Concomitant]
     Route: 048
  16. SOLU-MEDROL [Concomitant]
     Route: 042
  17. VITAMIN B12 [Concomitant]
     Route: 048
  18. CIPROFLOXACIN [Concomitant]
     Route: 048
  19. COMPAZINE [Concomitant]
     Route: 048
  20. COMPAZINE [Concomitant]
     Route: 054
  21. LOVENOX [Concomitant]
     Route: 058
  22. MUCINEX [Concomitant]
     Route: 048
  23. PREDNISONE [Concomitant]
     Route: 048
  24. TUSSIONEX [Concomitant]
     Route: 048

REACTIONS (1)
  - ACUTE MYELOID LEUKAEMIA [None]
